FAERS Safety Report 6519795-6 (Version None)
Quarter: 2009Q4

REPORT INFORMATION
  Report Type: 
  Country: None (occurrence: None)
  Receive Date: 20091228
  Receipt Date: 20091228
  Transmission Date: 20100525
  Serious: Yes (Life-Threatening, Hospitalization, Disabling)
  Sender: FDA-Public Use
  Company Number: None

PATIENT
  Age: 19 Year
  Sex: Male
  Weight: 81.6475 kg

DRUGS (2)
  1. LUNESTA [Suspect]
  2. AMBIEN [Suspect]

REACTIONS (22)
  - ABNORMAL BEHAVIOUR [None]
  - AGGRESSION [None]
  - ALCOHOL INTERACTION [None]
  - ALCOHOL USE [None]
  - AMNESIA [None]
  - BACK INJURY [None]
  - CONDITION AGGRAVATED [None]
  - CRYING [None]
  - DRUG HYPERSENSITIVITY [None]
  - IMPAIRED DRIVING ABILITY [None]
  - IMPRISONMENT [None]
  - LIMB INJURY [None]
  - MIDDLE INSOMNIA [None]
  - MUSCLE TWITCHING [None]
  - OBSESSIVE-COMPULSIVE DISORDER [None]
  - PAIN [None]
  - PANIC ATTACK [None]
  - SCREAMING [None]
  - SELF-MEDICATION [None]
  - STUPOR [None]
  - THINKING ABNORMAL [None]
  - WRIST FRACTURE [None]
